FAERS Safety Report 7163503-5 (Version None)
Quarter: 2010Q4

REPORT INFORMATION
  Report Type: 
  Country: None (occurrence: None)
  Receive Date: 20101215
  Receipt Date: 20100429
  Transmission Date: 20110411
  Serious: Yes (Hospitalization, Other)
  Sender: FDA-Public Use
  Company Number: US-PFIZER INC-2010054683

PATIENT
  Sex: Female
  Weight: 90.703 kg

DRUGS (4)
  1. LYRICA [Suspect]
     Indication: NEURALGIA
     Dosage: 100 MG, 2X/DAY
     Route: 048
  2. OXYCODONE [Concomitant]
     Dosage: 40 MG, UNK
     Route: 048
  3. VALIUM [Concomitant]
     Dosage: 5 MG, UNK
     Route: 048
  4. SOMA [Concomitant]
     Dosage: UNK
     Route: 048

REACTIONS (5)
  - BLISTER [None]
  - DYSPNOEA [None]
  - PHARYNGEAL OEDEMA [None]
  - SKIN HAEMORRHAGE [None]
  - VISION BLURRED [None]
